FAERS Safety Report 21071453 (Version 9)
Quarter: 2022Q4

REPORT INFORMATION
  Report Type: Report from Study
  Country: JP (occurrence: JP)
  Receive Date: 20220712
  Receipt Date: 20221226
  Transmission Date: 20230113
  Serious: Yes (Hospitalization)
  Sender: FDA-Public Use
  Company Number: JP-NOVARTISPH-NVSC2022JP157001

PATIENT
  Age: 41 Year
  Sex: Female
  Weight: 90.6 kg

DRUGS (22)
  1. ILARIS [Suspect]
     Active Substance: CANAKINUMAB
     Indication: Still^s disease
     Dosage: 2 ML, Q4W
     Route: 058
     Dates: start: 20210720
  2. PREDONINE [Suspect]
     Active Substance: PREDNISOLONE
     Indication: Still^s disease
     Dosage: 19 MG, QD
     Route: 048
     Dates: start: 20220622, end: 20220708
  3. PREDONINE [Suspect]
     Active Substance: PREDNISOLONE
     Dosage: INJECTION
     Route: 065
     Dates: start: 20220709, end: 20220712
  4. GLYCOSAMINOGLYCANS [Concomitant]
     Active Substance: GLYCOSAMINOGLYCANS
     Indication: Dry skin
     Dosage: 0.3 % (FOAM)
     Route: 065
     Dates: start: 20201211
  5. GLYCOSAMINOGLYCANS [Concomitant]
     Active Substance: GLYCOSAMINOGLYCANS
     Dosage: UNK (SOFT OINMENT)
     Route: 065
     Dates: start: 20211221
  6. GLYCOSAMINOGLYCANS [Concomitant]
     Active Substance: GLYCOSAMINOGLYCANS
     Dosage: UNK (LOTION)
     Route: 065
     Dates: start: 20220315
  7. ZEBIAX [Concomitant]
     Indication: Acne
     Dosage: UNK (LOTION)
     Route: 065
     Dates: start: 20210824
  8. NEXIUM [Concomitant]
     Active Substance: ESOMEPRAZOLE MAGNESIUM
     Indication: Prophylaxis
     Dosage: UNK
     Route: 065
     Dates: start: 20210817
  9. BETAHISTINE MESILATE [Concomitant]
     Active Substance: BETAHISTINE MESILATE
     Indication: Dizziness
     Dosage: UNK
     Route: 065
     Dates: start: 20211221
  10. HYALURONATE SODIUM [Concomitant]
     Active Substance: HYALURONATE SODIUM
     Indication: Dry eye
     Dosage: UNK (OPHTHALMIC SOLUTION)
     Route: 065
     Dates: start: 20211221
  11. MIYA-BM [Concomitant]
     Active Substance: CLOSTRIDIUM BUTYRICUM SPORES STRAIN M-55
     Indication: Prophylaxis
     Dosage: UNK
     Route: 065
     Dates: start: 20211002
  12. SHAKUYAKUKANZOTO [Concomitant]
     Active Substance: HERBALS
     Indication: Pain
     Dosage: UNK
     Route: 065
     Dates: start: 20220524
  13. HERBALS [Concomitant]
     Active Substance: HERBALS
     Indication: Rhinitis perennial
     Dosage: UNK
     Route: 065
     Dates: start: 20220705
  14. CALCIUM CHLORIDE\POTASSIUM CHLORIDE\SODIUM ACETATE\SODIUM CHLORIDE [Concomitant]
     Active Substance: CALCIUM CHLORIDE\POTASSIUM CHLORIDE\SODIUM ACETATE\SODIUM CHLORIDE
     Indication: Dehydration
     Dosage: UNK
     Route: 065
     Dates: start: 20220709, end: 20220712
  15. SOLITA [Concomitant]
     Indication: Dehydration
     Dosage: UNK
     Route: 065
     Dates: start: 20220709, end: 20220712
  16. VOLTAREN [Concomitant]
     Active Substance: DICLOFENAC SODIUM
     Indication: Still^s disease
     Dosage: UNK
     Route: 065
     Dates: start: 20210521, end: 20220823
  17. CALONAL [Concomitant]
     Active Substance: ACETAMINOPHEN
     Indication: Headache
     Dosage: UNK
     Route: 065
     Dates: start: 20210714
  18. CALONAL [Concomitant]
     Active Substance: ACETAMINOPHEN
     Indication: Still^s disease
  19. CARBOCYSTEINE [Concomitant]
     Active Substance: CARBOCYSTEINE
     Indication: Asthma
     Dosage: UNK
     Route: 065
     Dates: start: 201005
  20. CARBOCYSTEINE [Concomitant]
     Active Substance: CARBOCYSTEINE
     Indication: Rhinitis perennial
  21. ICOSAPENT ETHYL [Concomitant]
     Active Substance: ICOSAPENT ETHYL
     Indication: Hyperlipidaemia
     Dosage: UNK
     Route: 065
     Dates: start: 20210205, end: 20220712
  22. TALION [Concomitant]
     Indication: Rhinitis perennial
     Dosage: UNK
     Route: 065
     Dates: start: 20220413

REACTIONS (1)
  - Pneumonia [Recovered/Resolved]

NARRATIVE: CASE EVENT DATE: 20220709
